FAERS Safety Report 17991453 (Version 1)
Quarter: 2020Q3

REPORT INFORMATION
  Report Type: Spontaneous
  Country: US (occurrence: US)
  Receive Date: 20200707
  Receipt Date: 20200707
  Transmission Date: 20201103
  Serious: Yes (Death)
  Sender: FDA-Public Use
  Company Number: NVSC2020US190630

PATIENT
  Sex: Female

DRUGS (2)
  1. HYCAMTIN [Suspect]
     Active Substance: TOPOTECAN HYDROCHLORIDE
     Indication: NEUROENDOCRINE TUMOUR
     Dosage: 0.75 MG, QD (FOR 5 DAYS) (STRENGTH: 0.25 MG)
     Route: 048
     Dates: start: 20200515
  2. HYCAMTIN [Suspect]
     Active Substance: TOPOTECAN HYDROCHLORIDE
     Dosage: 3 MG, QD (FOR 5 DAYS) (STRENGTH: 1 MG)
     Route: 048
     Dates: start: 20200515

REACTIONS (1)
  - Death [Fatal]
